FAERS Safety Report 9200553 (Version 3)
Quarter: 2013Q2

REPORT INFORMATION
  Report Type: Spontaneous
  Country: SE (occurrence: SE)
  Receive Date: 20130329
  Receipt Date: 20130604
  Transmission Date: 20140414
  Serious: Yes (Death)
  Sender: FDA-Public Use
  Company Number: SE-ABBOTT-13P-150-1069636-00

PATIENT
  Age: 50 Year
  Sex: Female

DRUGS (1)
  1. HUMIRA [Suspect]
     Indication: RHEUMATOID ARTHRITIS
     Dates: start: 2004

REACTIONS (5)
  - Pulmonary embolism [Fatal]
  - Pneumonia klebsiella [Fatal]
  - Aspergillosis oral [Fatal]
  - Gastrointestinal bacterial infection [Fatal]
  - Adverse drug reaction [Fatal]
